FAERS Safety Report 10008710 (Version 1)
Quarter: 2014Q1

REPORT INFORMATION
  Report Type: Spontaneous
  Country: US (occurrence: US)
  Receive Date: 20140312
  Receipt Date: 20140312
  Transmission Date: 20141002
  Serious: No
  Sender: FDA-Public Use
  Company Number: US-INCYTE CORPORATION-2012IN000422

PATIENT
  Age: 84 Year
  Sex: Male

DRUGS (9)
  1. JAKAFI [Suspect]
     Indication: MYELOFIBROSIS
     Dosage: 15 MG, BID
     Route: 048
     Dates: start: 20120308
  2. CALCIUM [Concomitant]
  3. COQ10 [Concomitant]
  4. FLOMAX [Concomitant]
  5. LIPITOR [Concomitant]
  6. PLAVIX [Concomitant]
  7. SYNTHROID [Concomitant]
  8. VITAMIN D [Concomitant]
  9. VITAMIN B12 [Concomitant]

REACTIONS (1)
  - Wound [Not Recovered/Not Resolved]
